FAERS Safety Report 17166312 (Version 1)
Quarter: 2019Q4

REPORT INFORMATION
  Report Type: Spontaneous
  Country: FR (occurrence: FR)
  Receive Date: 20191217
  Receipt Date: 20191217
  Transmission Date: 20200122
  Serious: Yes (Hospitalization)
  Sender: FDA-Public Use
  Company Number: FR-MYLANLABS-2019M1123335

PATIENT
  Age: 69 Year
  Sex: Female
  Weight: 45 kg

DRUGS (3)
  1. RIFAMPICINE [Suspect]
     Active Substance: RIFAMPIN
     Indication: OSTEITIS
     Dosage: 600 MILLIGRAM, QD
     Route: 048
     Dates: start: 20190704, end: 20190708
  2. LINEZOLID. [Suspect]
     Active Substance: LINEZOLID
     Indication: OSTEITIS
     Dosage: 1200 MILLIGRAM, QD
     Route: 048
     Dates: start: 20190703, end: 20190708
  3. DALACINE                           /00166003/ [Concomitant]
     Active Substance: CLINDAMYCIN
     Indication: OSTEITIS
     Dosage: 1800 MILLIGRAM, QD
     Route: 048
     Dates: start: 20190703, end: 20190703

REACTIONS (1)
  - Hepatic failure [Recovered/Resolved]

NARRATIVE: CASE EVENT DATE: 20190708
